FAERS Safety Report 18101603 (Version 2)
Quarter: 2020Q3

REPORT INFORMATION
  Report Type: Spontaneous
  Country: US (occurrence: US)
  Receive Date: 20200801
  Receipt Date: 20200811
  Transmission Date: 20201103
  Serious: No
  Sender: FDA-Public Use
  Company Number: US-TEVA-2020-US-1808544

PATIENT
  Age: 67 Year
  Sex: Female

DRUGS (1)
  1. TEMAZEPAM TEVA [Suspect]
     Active Substance: TEMAZEPAM
     Indication: SLEEP DISORDER
     Dates: start: 202002

REACTIONS (2)
  - Therapeutic product effect variable [Unknown]
  - Initial insomnia [Unknown]

NARRATIVE: CASE EVENT DATE: 202007
